FAERS Safety Report 9524728 (Version 1)
Quarter: 2013Q3

REPORT INFORMATION
  Report Type: Spontaneous
  Country: FR (occurrence: FR)
  Receive Date: 20130916
  Receipt Date: 20130916
  Transmission Date: 20140515
  Serious: Yes (Hospitalization)
  Sender: FDA-Public Use
  Company Number: PHHY2013FR101152

PATIENT
  Age: 49 Year
  Sex: Female

DRUGS (9)
  1. EXFORGE [Suspect]
     Dosage: UNK UKN, UNK
     Route: 048
     Dates: end: 20110628
  2. RAMIPRIL [Suspect]
     Dosage: UNK UKN, UNK
     Route: 048
  3. LASILIX [Suspect]
     Dosage: UNK UKN, UNK
     Route: 048
     Dates: end: 20110628
  4. ATENOLOL [Concomitant]
     Dosage: UNK UKN, UNK
  5. TAHOR [Concomitant]
     Dosage: UNK UKN, UNK
  6. GLUCOPHAGE [Concomitant]
     Dosage: UNK UKN, UNK
  7. VICTOZA [Concomitant]
     Dosage: UNK UKN, UNK
  8. LANTUS [Concomitant]
     Dosage: UNK UKN, UNK
  9. ADENURIC [Concomitant]
     Dosage: UNK UKN, UNK

REACTIONS (6)
  - Lactic acidosis [Recovered/Resolved]
  - Asthenia [Unknown]
  - Decreased appetite [Unknown]
  - Vomiting [Unknown]
  - Renal failure acute [Recovered/Resolved]
  - Anuria [Unknown]
